FAERS Safety Report 9433909 (Version 1)
Quarter: 2013Q3

REPORT INFORMATION
  Report Type: Report from Study
  Country: AU (occurrence: AU)
  Receive Date: 20130801
  Receipt Date: 20130801
  Transmission Date: 20140515
  Serious: Yes (Hospitalization)
  Sender: FDA-Public Use
  Company Number: PHHO2013AU009808

PATIENT
  Age: 65 Year
  Sex: Male

DRUGS (3)
  1. CICLOSPORIN [Suspect]
     Indication: RENAL TRANSPLANT
     Dosage: 100 MG, QD
     Route: 048
     Dates: start: 20111214
  2. MYCOPHENOLATE MOFETIL [Suspect]
     Dates: start: 20061128
  3. PREDNISONE [Suspect]
     Dosage: UNK UKN, UNK
     Dates: start: 20061128

REACTIONS (1)
  - Blood creatinine increased [Recovered/Resolved]
